FAERS Safety Report 5929226-2 (Version None)
Quarter: 2008Q4

REPORT INFORMATION
  Report Type: 
  Country: None (occurrence: None)
  Receive Date: 20081023
  Receipt Date: 20081023
  Transmission Date: 20090506
  Serious: No
  Sender: FDA-Public Use
  Company Number: None

PATIENT
  Age: 29 Year
  Sex: Male
  Weight: 90.7194 kg

DRUGS (1)
  1. ZYRTEC [Suspect]
     Dosage: NORMAL

REACTIONS (4)
  - DEPRESSION [None]
  - MENTAL DISORDER [None]
  - NERVOUSNESS [None]
  - PSYCHOTIC DISORDER [None]
